FAERS Safety Report 4867889-3 (Version None)
Quarter: 2005Q4

REPORT INFORMATION
  Report Type: 
  Country: None (occurrence: None)
  Receive Date: 20051227
  Receipt Date: 20051217
  Transmission Date: 20060501
  Serious: Yes (Hospitalization, Other)
  Sender: FDA-Public Use
  Company Number: GXKR2005AU02146

PATIENT
  Age: 14 Year
  Sex: Female
  Weight: 39.4 kg

DRUGS (2)
  1. DEXAMETHASONE [Suspect]
     Indication: SYSTEMIC LUPUS ERYTHEMATOSUS
     Dates: start: 19920608, end: 19920824
  2. PREDNISOLONE [Suspect]
     Indication: SYSTEMIC LUPUS ERYTHEMATOSUS
     Dosage: 50 MG
     Dates: start: 19920101, end: 19920824

REACTIONS (5)
  - IATROGENIC INJURY [None]
  - MEDICATION ERROR [None]
  - OSTEOPOROSIS [None]
  - SPINAL FRACTURE [None]
  - WEIGHT DECREASED [None]
